FAERS Safety Report 13924286 (Version 1)
Quarter: 2017Q3

REPORT INFORMATION
  Report Type: Spontaneous
  Country: US (occurrence: US)
  Receive Date: 20170831
  Receipt Date: 20170831
  Transmission Date: 20171127
  Serious: Yes (Life-Threatening, Other)
  Sender: FDA-Public Use
  Company Number: US-JNJFOC-20170824613

PATIENT
  Age: 54 Year
  Sex: Female

DRUGS (5)
  1. LOPERAMIDE HYDROCHLORIDE. [Suspect]
     Active Substance: LOPERAMIDE HYDROCHLORIDE
     Route: 065
  2. CARISOPRODOL. [Suspect]
     Active Substance: CARISOPRODOL
     Indication: SUICIDE ATTEMPT
     Route: 065
  3. DOXEPIN [Suspect]
     Active Substance: DOXEPIN
     Indication: SUICIDE ATTEMPT
     Route: 065
  4. LOPERAMIDE HYDROCHLORIDE. [Suspect]
     Active Substance: LOPERAMIDE HYDROCHLORIDE
     Indication: SUICIDE ATTEMPT
     Route: 065
  5. HYDROXYZINE [Suspect]
     Active Substance: HYDROXYZINE HYDROCHLORIDE
     Indication: SUICIDE ATTEMPT
     Route: 065

REACTIONS (4)
  - Lethargy [Unknown]
  - Somnolence [Unknown]
  - Coma [Unknown]
  - Tachycardia [Unknown]
